FAERS Safety Report 4752170-3 (Version None)
Quarter: 2005Q3

REPORT INFORMATION
  Report Type: 
  Country: None (occurrence: None)
  Receive Date: 20050824
  Receipt Date: 20050824
  Transmission Date: 20060218
  Serious: Yes (Hospitalization)
  Sender: FDA-Public Use
  Company Number: None

PATIENT
  Age: 74 Year
  Sex: Female
  Weight: 73.0291 kg

DRUGS (5)
  1. TOPOTECAN [Suspect]
     Indication: SMALL CELL LUNG CANCER METASTATIC
     Dosage: 7 MG Q WK
     Dates: start: 20050722
  2. GLUCOTROL [Concomitant]
  3. ACCUPRIL [Concomitant]
  4. PREVACID [Concomitant]
  5. ALBUTEROL [Concomitant]

REACTIONS (1)
  - DYSPNOEA [None]
